FAERS Safety Report 19707171 (Version 1)
Quarter: 2021Q3

REPORT INFORMATION
  Report Type: Spontaneous
  Country: US (occurrence: US)
  Receive Date: 20210817
  Receipt Date: 20210817
  Transmission Date: 20211014
  Serious: Yes (Other)
  Sender: FDA-Public Use
  Company Number: None

PATIENT
  Age: 73 Year
  Sex: Male
  Weight: 67.5 kg

DRUGS (8)
  1. IVERMECTIN. [Concomitant]
     Active Substance: IVERMECTIN
  2. REGEN?COV [Suspect]
     Active Substance: CASIRIVIMAB\IMDEVIMAB
     Indication: COVID-19
     Dates: start: 20210813, end: 20210813
  3. PREDNOSONE [Concomitant]
  4. D?3 [Concomitant]
     Active Substance: CHOLECALCIFEROL
  5. MULTIVITAMIN [Concomitant]
     Active Substance: VITAMINS
  6. ANTIBIOTIC FOR UTI [Concomitant]
  7. ZINC. [Concomitant]
     Active Substance: ZINC
  8. C [Concomitant]

REACTIONS (6)
  - Chills [None]
  - Myalgia [None]
  - Infusion related reaction [None]
  - Pyrexia [None]
  - Pulmonary congestion [None]
  - Muscle spasms [None]

NARRATIVE: CASE EVENT DATE: 20210813
